FAERS Safety Report 24093139 (Version 1)
Quarter: 2024Q3

REPORT INFORMATION
  Report Type: Spontaneous
  Country: US (occurrence: US)
  Receive Date: 20240715
  Receipt Date: 20240715
  Transmission Date: 20241017
  Serious: Yes (Other)
  Sender: DR REDDYS
  Company Number: US-DRL-USA-LIT/USA/24/0010132

PATIENT
  Age: 24 Year
  Sex: Male

DRUGS (2)
  1. HEPARIN [Suspect]
     Active Substance: HEPARIN SODIUM
     Indication: Thrombosis prophylaxis
     Dosage: INITIAL DOSE OF 8 UNITS/KG/H. LATER, THE DOSE WAS INCREASED TO 9 UNITS/KG/H
     Route: 042
  2. BIVALIRUDIN [Suspect]
     Active Substance: BIVALIRUDIN
     Indication: Thrombosis prophylaxis
     Dosage: 0.05 UNITS/KG/H.

REACTIONS (3)
  - Pulmonary alveolar haemorrhage [Recovering/Resolving]
  - Application site haemorrhage [Recovering/Resolving]
  - Ear haemorrhage [Recovering/Resolving]
